FAERS Safety Report 10258531 (Version 1)
Quarter: 2014Q2

REPORT INFORMATION
  Report Type: Spontaneous
  Country: JP (occurrence: None)
  Receive Date: 20140623
  Receipt Date: 20140623
  Transmission Date: 20141212
  Serious: Yes (Death, Hospitalization)
  Sender: FDA-Public Use
  Company Number: INT_00383_2014

PATIENT
  Age: 70 Year
  Sex: Male

DRUGS (2)
  1. CISPLATIN [Suspect]
     Indication: OESOPHAGEAL SQUAMOUS CELL CARCINOMA
     Dosage: DAY 1 OF A 28-DAY CYCLE; 2 COURSES
  2. 5-FLUOROURACIL [Suspect]
     Indication: OESOPHAGEAL SQUAMOUS CELL CARCINOMA
     Dosage: DAYS 1-5 OF A 28-DAY CYCLE; 2 COURSES

REACTIONS (3)
  - Acute myeloid leukaemia [None]
  - Pneumonia [None]
  - Second primary malignancy [None]
